FAERS Safety Report 6593065-2 (Version None)
Quarter: 2010Q1

REPORT INFORMATION
  Report Type: 
  Country: None (occurrence: None)
  Receive Date: 20100222
  Receipt Date: 20100219
  Transmission Date: 20100710
  Serious: Yes (Death)
  Sender: FDA-Public Use
  Company Number: US-ROXANE LABORATORIES, INC.-2010-RO-00154RO

PATIENT
  Sex: Female

DRUGS (2)
  1. DEXAMETHASONE [Suspect]
     Indication: BLOOD CORTISOL INCREASED
  2. DEXAMETHASONE [Suspect]
     Indication: BLOOD CORTICOTROPHIN INCREASED

REACTIONS (2)
  - BLOOD CORTISOL INCREASED [None]
  - DEATH [None]
